FAERS Safety Report 5457235-9 (Version None)
Quarter: 2007Q3

REPORT INFORMATION
  Report Type: 
  Country: None (occurrence: None)
  Receive Date: 20070918
  Receipt Date: 20070410
  Transmission Date: 20080115
  Serious: Yes (Other)
  Sender: FDA-Public Use
  Company Number: US-ASTRAZENECA-2007UW01698

PATIENT
  Age: 44 Year
  Sex: Female

DRUGS (3)
  1. SEROQUEL [Suspect]
     Route: 048
     Dates: end: 20070205
  2. SEROQUEL [Suspect]
     Route: 048
     Dates: start: 20070206
  3. RISPERDAL CONSTA [Concomitant]
     Indication: PSYCHOTIC DISORDER
     Route: 030

REACTIONS (1)
  - BLOOD GLUCOSE INCREASED [None]
